APPROVED DRUG PRODUCT: SODIUM IODIDE I 131
Active Ingredient: SODIUM IODIDE I-131
Strength: 0.009-0.1mCi
Dosage Form/Route: CAPSULE;ORAL
Application: N021305 | Product #006
Applicant: JUBILANT DRAXIMAGE INC DBA JUBILANT RADIOPHARMA
Approved: May 19, 2005 | RLD: Yes | RS: No | Type: RX